FAERS Safety Report 16774059 (Version 1)
Quarter: 2019Q3

REPORT INFORMATION
  Report Type: Spontaneous
  Country: GB (occurrence: GB)
  Receive Date: 20190905
  Receipt Date: 20190905
  Transmission Date: 20191005
  Serious: Yes (Hospitalization, Other)
  Sender: FDA-Public Use
  Company Number: GB-AMGEN-GBRSP2019140374

PATIENT
  Age: 76 Year
  Sex: Female

DRUGS (1)
  1. AMGEVITA [Suspect]
     Active Substance: ADALIMUMAB
     Indication: ANKYLOSING SPONDYLITIS
     Dosage: 40 MILLIGRAM, Q2WK
     Route: 058
     Dates: start: 20190308, end: 20190322

REACTIONS (10)
  - Dyspnoea [Unknown]
  - Palpitations [Unknown]
  - Weight decreased [Unknown]
  - Malaise [Unknown]
  - Activated partial thromboplastin time prolonged [Unknown]
  - Product substitution issue [Unknown]
  - Tricuspid valve incompetence [Unknown]
  - Ventricular tachycardia [Recovered/Resolved with Sequelae]
  - Abdominal pain upper [Unknown]
  - Mitral valve prolapse [Unknown]

NARRATIVE: CASE EVENT DATE: 20190324
